FAERS Safety Report 4773196-X (Version None)
Quarter: 2005Q3

REPORT INFORMATION
  Report Type: 
  Country: None (occurrence: None)
  Receive Date: 20050919
  Receipt Date: 20050526
  Transmission Date: 20060218
  Serious: Yes (Disabling)
  Sender: FDA-Public Use
  Company Number: CA-MERCK-0506CAN00008

PATIENT
  Age: 57 Year
  Sex: Female
  Weight: 75 kg

DRUGS (11)
  1. VIOXX [Suspect]
     Indication: OSTEOARTHRITIS
     Route: 048
     Dates: start: 20000601, end: 20040101
  2. VIOXX [Suspect]
     Indication: INFLAMMATION
     Route: 048
     Dates: start: 20000601, end: 20040101
  3. LEVOTHYROXINE SODIUM [Concomitant]
     Indication: THYROID DISORDER
     Route: 065
  4. FOSAMAX [Concomitant]
     Indication: OSTEOPOROSIS
     Route: 048
  5. ASPIRIN [Concomitant]
     Route: 065
  6. HYDROXYCHLOROQUINE SULFATE [Concomitant]
     Indication: INFLAMMATION
     Route: 065
  7. IRBESARTAN [Concomitant]
     Indication: HYPERTENSION
     Route: 065
     Dates: start: 19920101
  8. ATENOLOL [Concomitant]
     Indication: HYPERTENSION
     Route: 065
     Dates: start: 19950101
  9. PANTOPRAZOLE SODIUM [Concomitant]
     Route: 065
  10. PREDNISONE [Concomitant]
     Indication: ARTHRITIS
     Route: 065
  11. LORAZEPAM [Concomitant]
     Route: 065
     Dates: start: 20010101, end: 20050101

REACTIONS (26)
  - ABDOMINAL DISTENSION [None]
  - ABDOMINAL PAIN [None]
  - ABDOMINAL PAIN UPPER [None]
  - ANHEDONIA [None]
  - ANXIETY [None]
  - CEREBROVASCULAR ACCIDENT [None]
  - DEPENDENT PERSONALITY DISORDER [None]
  - DEPRESSION [None]
  - DISORIENTATION [None]
  - DIZZINESS [None]
  - DYSSTASIA [None]
  - EMOTIONAL DISORDER [None]
  - FATIGUE [None]
  - FLUID RETENTION [None]
  - GASTROINTESTINAL PAIN [None]
  - INSOMNIA [None]
  - LIFE EXPECTANCY SHORTENED [None]
  - NERVOUS SYSTEM DISORDER [None]
  - PAIN [None]
  - PANIC DISORDER [None]
  - PRURITUS [None]
  - SLEEP DISORDER [None]
  - STOMACH DISCOMFORT [None]
  - STRESS [None]
  - TREMOR [None]
  - VOMITING [None]
